FAERS Safety Report 4586891-2 (Version None)
Quarter: 2005Q1

REPORT INFORMATION
  Report Type: 
  Country: None (occurrence: None)
  Receive Date: 20050218
  Receipt Date: 20050206
  Transmission Date: 20050727
  Serious: Yes (Hospitalization)
  Sender: FDA-Public Use
  Company Number: US-ROCHE-394868

PATIENT
  Age: 64 Year
  Sex: Female

DRUGS (3)
  1. PEGASYS [Suspect]
     Route: 058
     Dates: start: 20040826, end: 20050207
  2. COPEGUS [Suspect]
     Dosage: 2 DOSE FORMS TAKEN AM AND 2 DOSE FORM TAKEN PM.
     Route: 048
     Dates: start: 20040826, end: 20050207
  3. ZOLOFT [Concomitant]
     Indication: PROPHYLAXIS
     Route: 048
     Dates: start: 20040815, end: 20050115

REACTIONS (7)
  - ANGER [None]
  - BRONCHITIS CHRONIC [None]
  - COUGH [None]
  - DYSPNOEA [None]
  - IRRITABILITY [None]
  - NAUSEA [None]
  - THROMBOSIS [None]
